FAERS Safety Report 9419619 (Version 1)
Quarter: 2013Q3

REPORT INFORMATION
  Report Type: Spontaneous
  Country: US (occurrence: None)
  Receive Date: 20130724
  Receipt Date: 20130724
  Transmission Date: 20140515
  Serious: Yes (Hospitalization, Other)
  Sender: FDA-Public Use
  Company Number: None

PATIENT
  Age: 51 Year
  Sex: Male
  Weight: 89.81 kg

DRUGS (7)
  1. CLOZAPINE [Suspect]
     Indication: GASTROOESOPHAGEAL REFLUX DISEASE
     Dosage: ONCE DAILY
  2. CLOZAPINE [Suspect]
     Indication: DYSPEPSIA
     Dosage: ONCE DAILY
  3. OMEPRAZOLE [Suspect]
     Dosage: ONCE DAILY
  4. LITHIUM CARBONATE [Concomitant]
  5. HALDOL [Concomitant]
  6. HALOPERIDOL [Concomitant]
  7. BENZTROPINE MESYLATE [Concomitant]

REACTIONS (2)
  - Gastrooesophageal reflux disease [None]
  - Dyspepsia [None]
